FAERS Safety Report 16705214 (Version 1)
Quarter: 2019Q3

REPORT INFORMATION
  Report Type: Spontaneous
  Country: US (occurrence: US)
  Receive Date: 20190815
  Receipt Date: 20190815
  Transmission Date: 20191004
  Serious: Yes (Other)
  Sender: FDA-Public Use
  Company Number: US-ABBVIE-19K-163-2884237-00

PATIENT
  Sex: Male

DRUGS (3)
  1. VENCLEXTA [Suspect]
     Active Substance: VENETOCLAX
     Indication: ACUTE MYELOID LEUKAEMIA RECURRENT
     Route: 048
  2. VENCLEXTA [Suspect]
     Active Substance: VENETOCLAX
     Indication: LEFT VENTRICULAR FAILURE
  3. VENCLEXTA [Suspect]
     Active Substance: VENETOCLAX
     Indication: LEFT VENTRICULAR FAILURE

REACTIONS (4)
  - Cardiac failure [Unknown]
  - Acute myeloid leukaemia [Unknown]
  - Cardiac flutter [Unknown]
  - Off label use [Unknown]
